FAERS Safety Report 7722928-7 (Version None)
Quarter: 2011Q3

REPORT INFORMATION
  Report Type: 
  Country: None (occurrence: None)
  Receive Date: 20110826
  Receipt Date: 20110819
  Transmission Date: 20111222
  Serious: Yes (Life-Threatening, Hospitalization, Other)
  Sender: FDA-Public Use
  Company Number: 2010US003597

PATIENT
  Age: 21 Year
  Sex: Male
  Weight: 60 kg

DRUGS (7)
  1. AMBISOME [Suspect]
     Indication: FUNGAL INFECTION
     Dosage: 600 MG, UID/QD, IV NOS; 10 MG/KG, UID/QD, IV NOS; 5 MG/KG, /D, IV NOS;
     Route: 042
     Dates: start: 20100824, end: 20100902
  2. AMBISOME [Suspect]
     Indication: FUNGAL INFECTION
     Dosage: 600 MG, UID/QD, IV NOS; 10 MG/KG, UID/QD, IV NOS; 5 MG/KG, /D, IV NOS;
     Route: 042
     Dates: start: 20100726, end: 20100902
  3. AMBISOME [Suspect]
     Indication: FUNGAL INFECTION
     Dosage: 600 MG, UID/QD, IV NOS; 10 MG/KG, UID/QD, IV NOS; 5 MG/KG, /D, IV NOS;
     Route: 042
     Dates: start: 20100724, end: 20100823
  4. VANCOMYCIN [Suspect]
     Indication: OSTEITIS
     Dosage: 2 G, UID/QD, IV NOS
     Route: 042
     Dates: start: 20100805, end: 20100902
  5. RIFAMPICIN [Suspect]
     Indication: OSTEITIS
     Dosage: 1200 MG, UID/QD, ORAL
     Route: 048
     Dates: start: 20100806, end: 20100902
  6. RIFAMPICIN [Suspect]
     Dosage: 900 MG /D, IV NOS
     Route: 042
     Dates: start: 20100808, end: 20100902
  7. AMOXICILLINE (AMOXICILLIN SODIUM) [Suspect]
     Indication: OSTEITIS
     Dosage: 2 G SIX TIMES DAILY, IV NOS
     Route: 042
     Dates: start: 20100805, end: 20100902

REACTIONS (3)
  - NEUTROPENIA [None]
  - BONE MARROW MYELOGRAM ABNORMAL [None]
  - AGRANULOCYTOSIS [None]
